FAERS Safety Report 5404069-7 (Version None)
Quarter: 2007Q3

REPORT INFORMATION
  Report Type: 
  Country: None (occurrence: None)
  Receive Date: 20070801
  Receipt Date: 20070718
  Transmission Date: 20080115
  Serious: Yes (Hospitalization)
  Sender: FDA-Public Use
  Company Number: 235976K07USA

PATIENT
  Sex: Female

DRUGS (4)
  1. REBIF [Suspect]
     Indication: MULTIPLE SCLEROSIS
     Dosage: 44 MCG, 3 IN 1 WEEKS, SUBCUTANEOUS
     Route: 058
     Dates: start: 20060101, end: 20060101
  2. NEURONTIN [Concomitant]
  3. ULTRAM [Concomitant]
  4. XANAX [Concomitant]

REACTIONS (8)
  - CATATONIA [None]
  - CONDITION AGGRAVATED [None]
  - DEHYDRATION [None]
  - MULTIPLE SCLEROSIS [None]
  - OVERDOSE [None]
  - SPEECH DISORDER [None]
  - VOMITING [None]
  - WEIGHT DECREASED [None]
